FAERS Safety Report 5949092-9 (Version None)
Quarter: 2008Q4

REPORT INFORMATION
  Report Type: 
  Country: None (occurrence: None)
  Receive Date: 20081111
  Receipt Date: 20081105
  Transmission Date: 20090506
  Serious: No
  Sender: FDA-Public Use
  Company Number: US-B.I. PHARMACEUTICALS,INC./RIDGEFIELD-2008-BP-16781BP

PATIENT

DRUGS (4)
  1. VIRAMUNE [Suspect]
     Indication: HIV INFECTION
     Route: 048
     Dates: start: 19970101
  2. VIDEX [Concomitant]
     Indication: HIV INFECTION
     Dates: start: 19970101, end: 20080927
  3. EPIVIR [Concomitant]
     Indication: HIV INFECTION
     Dates: start: 19970101, end: 20080927
  4. TRUVADA [Concomitant]
     Indication: HIV INFECTION
     Dates: start: 20080928

REACTIONS (1)
  - DIZZINESS [None]
